FAERS Safety Report 7984430-7 (Version None)
Quarter: 2011Q4

REPORT INFORMATION
  Report Type: 
  Country: None (occurrence: None)
  Receive Date: 20111216
  Receipt Date: 20111206
  Transmission Date: 20120403
  Serious: Yes (Hospitalization, Other)
  Sender: FDA-Public Use
  Company Number: CA-ELI_LILLY_AND_COMPANY-CA201110007928

PATIENT
  Age: 74 Year
  Sex: Female

DRUGS (10)
  1. COUMADIN [Concomitant]
  2. METHOTREXATE [Concomitant]
  3. FOLIC ACID [Concomitant]
  4. PANTOLOC                           /01263202/ [Concomitant]
  5. PREDNISONE [Concomitant]
  6. FORTEO [Suspect]
     Indication: OSTEOPOROSIS
     Dosage: 20 UG, QD
     Route: 058
     Dates: start: 20110718, end: 20111014
  7. ATORVASTATIN [Concomitant]
  8. PANTOPRAZOLE [Concomitant]
  9. MORPHINE [Concomitant]
  10. FORTEO [Suspect]
     Dosage: 20 UG, QD
     Route: 058
     Dates: start: 20111026

REACTIONS (3)
  - OESOPHAGEAL ULCER [None]
  - OESOPHAGEAL RUPTURE [None]
  - THROMBOSIS [None]
